FAERS Safety Report 21541038 (Version 2)
Quarter: 2022Q4

REPORT INFORMATION
  Report Type: Report from Study
  Country: CA (occurrence: CA)
  Receive Date: 20221102
  Receipt Date: 20221109
  Transmission Date: 20230112
  Serious: Yes (Other)
  Sender: FDA-Public Use
  Company Number: CA-TAKEDA-2022TUS080738

PATIENT
  Age: 22 Year
  Sex: Female

DRUGS (2)
  1. VEDOLIZUMAB [Suspect]
     Active Substance: VEDOLIZUMAB
     Indication: Colitis ulcerative
     Dosage: 300 MILLIGRAM
     Route: 042
     Dates: start: 20220726
  2. Salofalk [Concomitant]
     Dosage: UNK
     Dates: start: 20220517

REACTIONS (2)
  - Pneumonia [Unknown]
  - Diarrhoea [Unknown]
